FAERS Safety Report 22140109 (Version 1)
Quarter: 2023Q1

REPORT INFORMATION
  Report Type: Spontaneous
  Country: FR (occurrence: FR)
  Receive Date: 20230327
  Receipt Date: 20230327
  Transmission Date: 20230417
  Serious: Yes (Other)
  Sender: FDA-Public Use
  Company Number: FR-EMA-DD-20230316-7180175-102628

PATIENT
  Age: 57 Year
  Sex: Female

DRUGS (3)
  1. TEGRETOL [Suspect]
     Active Substance: CARBAMAZEPINE
     Indication: Facial paralysis
     Dosage: 1 DOSAGE FORM (1 DF)
     Route: 065
     Dates: start: 20211018, end: 20211021
  2. VAXIGRIP [Suspect]
     Active Substance: INFLUENZA VIRUS VACCINE
     Indication: Antiviral prophylaxis
     Dosage: 1 DOSAGE FORM (SUBCUTANEOUS INJECTION)
     Route: 065
     Dates: start: 20211023, end: 20211023
  3. CHOLECALCIFEROL [Suspect]
     Active Substance: CHOLECALCIFEROL
     Indication: Product used for unknown indication
     Dosage: 100000 IU (100000 IU, Z, 1 VIAL / MONTH)
     Route: 065

REACTIONS (5)
  - Angioedema [Recovering/Resolving]
  - Rash [Recovered/Resolved]
  - Oedema mouth [Recovered/Resolved]
  - Hypersensitivity [Recovering/Resolving]
  - Lip oedema [Recovered/Resolved]

NARRATIVE: CASE EVENT DATE: 20211021
